FAERS Safety Report 5163680-1 (Version None)
Quarter: 2006Q4

REPORT INFORMATION
  Report Type: 
  Country: None (occurrence: None)
  Receive Date: 20061204
  Receipt Date: 20000727
  Transmission Date: 20070319
  Serious: Yes (Life-Threatening, Hospitalization)
  Sender: FDA-Public Use
  Company Number: FR-GLAXOSMITHKLINE-B0085049A

PATIENT
  Age: 9 Day
  Sex: Male
  Weight: 1.6 kg

DRUGS (4)
  1. RETROVIR [Suspect]
     Indication: ANTIVIRAL PROPHYLAXIS
     Route: 042
  2. RETROVIR [Suspect]
     Route: 048
  3. COMBIVIR [Suspect]
     Indication: HIV INFECTION
     Dosage: 450MG UNKNOWN
     Route: 048
  4. NELFINAVIR [Suspect]
     Indication: HIV INFECTION
     Route: 048

REACTIONS (6)
  - ANAEMIA [None]
  - BLOOD LACTIC ACID INCREASED [None]
  - ENTEROCOLITIS [None]
  - LACTATE PYRUVATE RATIO ABNORMAL [None]
  - PREMATURE BABY [None]
  - RECTAL HAEMORRHAGE [None]
